FAERS Safety Report 6494447-X (Version None)
Quarter: 2009Q4

REPORT INFORMATION
  Report Type: 
  Country: None (occurrence: None)
  Receive Date: 20091214
  Receipt Date: 20090219
  Transmission Date: 20100525
  Serious: No
  Sender: FDA-Public Use
  Company Number: US-BRISTOL-MYERS SQUIBB COMPANY-14513261

PATIENT
  Sex: Male

DRUGS (2)
  1. ABILIFY [Suspect]
     Indication: SCHIZOPHRENIA
     Dosage: DISCONTINUED AND REINSTITUTED AT 2MG QD
  2. SEROQUEL [Suspect]
     Indication: SCHIZOPHRENIA

REACTIONS (1)
  - LOSS OF CONSCIOUSNESS [None]
